FAERS Safety Report 24149923 (Version 1)
Quarter: 2024Q3

REPORT INFORMATION
  Report Type: Spontaneous
  Country: CN (occurrence: CN)
  Receive Date: 20240730
  Receipt Date: 20240730
  Transmission Date: 20241017
  Serious: Yes (Hospitalization, Other)
  Sender: MLV PHARMA
  Company Number: CN-MPL-000053

PATIENT
  Sex: Female

DRUGS (20)
  1. PREDNISONE [Suspect]
     Active Substance: PREDNISONE
     Indication: Myasthenia gravis
     Dosage: THE PREDNISONE^S DOSAGE WAS 25 MG QD IN AUGUST 2018
     Route: 065
     Dates: start: 201808
  2. PREDNISONE [Suspect]
     Active Substance: PREDNISONE
     Indication: Myasthenia gravis
     Dosage: PREDNISONE DOSE WAS DECLINED TO 10 MG QUAQUE DIE (QD) IN 2019
     Route: 065
     Dates: start: 201909
  3. PREDNISONE [Suspect]
     Active Substance: PREDNISONE
     Indication: Myasthenia gravis
     Dosage: PREDNISONE WAS INCREASED TO 60 MG QD
     Route: 065
     Dates: start: 202002
  4. PREDNISONE [Suspect]
     Active Substance: PREDNISONE
     Indication: Myasthenia gravis
     Route: 065
     Dates: start: 202007
  5. PREDNISONE [Suspect]
     Active Substance: PREDNISONE
     Indication: Myasthenia gravis
     Route: 065
     Dates: start: 202101
  6. PREDNISONE [Suspect]
     Active Substance: PREDNISONE
     Indication: Myasthenia gravis
     Route: 065
     Dates: start: 202109
  7. PREDNISONE [Suspect]
     Active Substance: PREDNISONE
     Indication: Myasthenia gravis
     Route: 065
     Dates: start: 202201
  8. PREDNISONE [Suspect]
     Active Substance: PREDNISONE
     Indication: Myasthenia gravis
     Route: 065
  9. RITUXIMAB [Suspect]
     Active Substance: RITUXIMAB
     Indication: Myasthenia gravis
     Dosage: DOSE OF 0.1 G ON DAY 1
     Route: 065
     Dates: start: 202101
  10. RITUXIMAB [Suspect]
     Active Substance: RITUXIMAB
     Indication: Myasthenia gravis
     Dosage: DOSES OF 0.1 G ON DAY 1 AND 0.5 G ON DAY 2
     Route: 065
  11. RITUXIMAB [Suspect]
     Active Substance: RITUXIMAB
     Indication: Myasthenia gravis
     Dosage: 0.1 G D1 IN SUBSEQUENT TWO TREATMENT
     Route: 065
  12. MYCOPHENOLATE MOFETIL [Suspect]
     Active Substance: MYCOPHENOLATE MOFETIL
     Indication: Myasthenia gravis
     Dosage: MYCOPHENOLATE MOFETIL (1 G BID)
     Route: 065
     Dates: start: 202209
  13. CYCLOSPORINE [Suspect]
     Active Substance: CYCLOSPORINE
     Indication: Myasthenia gravis
     Dosage: CYCLOSPORINE A (25 MG BID)
     Route: 065
     Dates: start: 202211
  14. AZATHIOPRINE [Suspect]
     Active Substance: AZATHIOPRINE
     Indication: Myasthenia gravis
     Dosage: AZATHIOPRINE (50 MG QD)
     Route: 065
     Dates: start: 202303, end: 202304
  15. TACROLIMUS [Suspect]
     Active Substance: TACROLIMUS
     Indication: Myasthenia gravis
     Dosage: TACROLIMUS (1.5 MG BID)
     Route: 065
     Dates: start: 201909, end: 202002
  16. TACROLIMUS [Suspect]
     Active Substance: TACROLIMUS
     Indication: Myasthenia gravis
     Route: 065
     Dates: start: 202007
  17. EFGARTIGIMOD ALFA [Suspect]
     Active Substance: EFGARTIGIMOD ALFA
     Indication: Myasthenia gravis
     Route: 058
     Dates: start: 202401
  18. PYRIDOSTIGMINE [Suspect]
     Active Substance: PYRIDOSTIGMINE
     Indication: Myasthenia gravis
     Dosage: DOSE OF PYRIDOSTIGMINE WAS 60 MG TER IN DIE (TID) DURING 2011 TO 2018
     Route: 065
     Dates: start: 201108, end: 201808
  19. PYRIDOSTIGMINE [Suspect]
     Active Substance: PYRIDOSTIGMINE
     Indication: Myasthenia gravis
     Dosage: INCREASED TO 60 MG QUATER IN DIE (QID) UNTIL JUNE 2023
     Route: 065
     Dates: start: 201808, end: 202306
  20. PYRIDOSTIGMINE [Suspect]
     Active Substance: PYRIDOSTIGMINE
     Indication: Myasthenia gravis
     Dosage: PYRIDOSTIGMINE WAS REDUCED TO 120 MG/DAY
     Route: 065
     Dates: start: 2023

REACTIONS (16)
  - Myasthenia gravis crisis [Recovered/Resolved]
  - Pneumonia [Recovered/Resolved]
  - Hyperprolactinaemia [Unknown]
  - Hyperglycaemia [Unknown]
  - Hyperlipidaemia [Unknown]
  - Myelosuppression [Unknown]
  - Venous thrombosis limb [Unknown]
  - Anal fistula [Unknown]
  - Gastrooesophageal reflux disease [Unknown]
  - Drug-induced liver injury [Recovered/Resolved]
  - Renal failure [Recovered/Resolved]
  - Drug ineffective [Unknown]
  - Exposure during pregnancy [Unknown]
  - Drug resistance [Unknown]
  - Hyperphagia [Unknown]
  - Injection site swelling [Recovered/Resolved]

NARRATIVE: CASE EVENT DATE: 20180101
